FAERS Safety Report 16715374 (Version 1)
Quarter: 2019Q3

REPORT INFORMATION
  Report Type: Spontaneous
  Country: US (occurrence: US)
  Receive Date: 20190819
  Receipt Date: 20190819
  Transmission Date: 20191005
  Serious: No
  Sender: FDA-Public Use
  Company Number: US-PFIZER INC-2019350495

PATIENT
  Age: 76 Year
  Sex: Female

DRUGS (1)
  1. PROPOFOL. [Suspect]
     Active Substance: PROPOFOL
     Dosage: UNK

REACTIONS (6)
  - Rhinitis [Unknown]
  - Rhinorrhoea [Unknown]
  - Urticaria [Unknown]
  - Sneezing [Unknown]
  - Drug hypersensitivity [Unknown]
  - Nasal congestion [Unknown]
